FAERS Safety Report 5354863-6 (Version None)
Quarter: 2007Q2

REPORT INFORMATION
  Report Type: 
  Country: None (occurrence: None)
  Receive Date: 20070611
  Receipt Date: 20070531
  Transmission Date: 20071010
  Serious: Yes (Other)
  Sender: FDA-Public Use
  Company Number: 2007SP011015

PATIENT
  Age: 3 Year
  Sex: Male

DRUGS (1)
  1. CLARITIN [Suspect]
     Indication: RHINORRHOEA
     Dosage: PO
     Route: 048

REACTIONS (5)
  - AGGRESSION [None]
  - CRYING [None]
  - IRRITABILITY [None]
  - PSYCHOMOTOR HYPERACTIVITY [None]
  - SCREAMING [None]
